FAERS Safety Report 12551939 (Version 1)
Quarter: 2016Q3

REPORT INFORMATION
  Report Type: Spontaneous
  Country: US (occurrence: US)
  Receive Date: 20160713
  Receipt Date: 20160713
  Transmission Date: 20161109
  Serious: No
  Sender: FDA-Public Use
  Company Number: US-BEH-2016058142

PATIENT
  Age: 68 Year
  Sex: Female
  Weight: 50.8 kg

DRUGS (14)
  1. LIDOCAINE/PRILOCAINE [Concomitant]
     Active Substance: LIDOCAINE\PRILOCAINE
  2. OXYGEN. [Concomitant]
     Active Substance: OXYGEN
  3. PREDNISONE. [Concomitant]
     Active Substance: PREDNISONE
  4. LISINOPRIL. [Concomitant]
     Active Substance: LISINOPRIL
  5. DIPHENHYDRAMINE. [Concomitant]
     Active Substance: DIPHENHYDRAMINE
  6. ALBUTEROL. [Concomitant]
     Active Substance: ALBUTEROL
  7. SODIUM CHLORIDE. [Concomitant]
     Active Substance: SODIUM CHLORIDE
  8. EPIPEN [Concomitant]
     Active Substance: EPINEPHRINE
  9. ZEMAIRA [Suspect]
     Active Substance: .ALPHA.1-PROTEINASE INHIBITOR HUMAN
     Indication: ALPHA-1 ANTI-TRYPSIN DEFICIENCY
     Dosage: 60 MG/KG, QW
     Route: 042
     Dates: start: 20120614
  10. HEPARIN [Concomitant]
     Active Substance: HEPARIN SODIUM
  11. XANAX [Concomitant]
     Active Substance: ALPRAZOLAM
  12. SPIRIVA [Concomitant]
     Active Substance: TIOTROPIUM BROMIDE MONOHYDRATE
  13. PROAIR HFA [Concomitant]
     Active Substance: ALBUTEROL SULFATE
  14. HYDROCHLOROTHIAZIDE. [Concomitant]
     Active Substance: HYDROCHLOROTHIAZIDE

REACTIONS (3)
  - Bronchitis [Unknown]
  - Weight increased [Unknown]
  - Central venous catheter removal [Unknown]

NARRATIVE: CASE EVENT DATE: 201511
